FAERS Safety Report 6702271-5 (Version None)
Quarter: 2010Q2

REPORT INFORMATION
  Report Type: 
  Country: None (occurrence: None)
  Receive Date: 20100429
  Receipt Date: 20100427
  Transmission Date: 20101027
  Serious: No
  Sender: FDA-Public Use
  Company Number: US-ROXANE LABORATORIES, INC.-2010-RO-00476RO

PATIENT
  Sex: Female

DRUGS (8)
  1. PREDNISONE [Suspect]
     Indication: GENERAL PHYSICAL HEALTH DETERIORATION
     Dosage: 20 MG
  2. LANTUS [Suspect]
     Indication: TYPE 2 DIABETES MELLITUS
     Route: 058
  3. PROSED [Concomitant]
  4. NORVASC [Concomitant]
     Indication: BLOOD PRESSURE
  5. CELEXA [Concomitant]
     Indication: DEPRESSION
  6. ATIVAN [Concomitant]
  7. TEMAZEPAM [Concomitant]
  8. INHALERS [Concomitant]
     Indication: CHRONIC OBSTRUCTIVE PULMONARY DISEASE

REACTIONS (1)
  - BLOOD GLUCOSE INCREASED [None]
